FAERS Safety Report 22721307 (Version 2)
Quarter: 2023Q4

REPORT INFORMATION
  Report Type: Spontaneous
  Country: KR (occurrence: KR)
  Receive Date: 20230719
  Receipt Date: 20231012
  Transmission Date: 20240110
  Serious: No
  Sender: FDA-Public Use
  Company Number: KR-BAYER-2019-211344

PATIENT
  Age: 63 Year
  Sex: Male

DRUGS (1)
  1. EYLEA [Suspect]
     Active Substance: AFLIBERCEPT
     Indication: Product used for unknown indication
     Dosage: SOLUTION FOR INJECTION; STRENGTH: 40MG/ML

REACTIONS (2)
  - Visual acuity reduced [Unknown]
  - Visual impairment [Unknown]
